FAERS Safety Report 12012693 (Version 5)
Quarter: 2016Q2

REPORT INFORMATION
  Report Type: Spontaneous
  Country: TR (occurrence: TR)
  Receive Date: 20160205
  Receipt Date: 20160505
  Transmission Date: 20160815
  Serious: Yes (Other)
  Sender: FDA-Public Use
  Company Number: PHHY2016TR011865

PATIENT
  Age: 60 Year
  Sex: Female

DRUGS (1)
  1. GILENYA [Suspect]
     Active Substance: FINGOLIMOD HYDROCHLORIDE
     Indication: RELAPSING-REMITTING MULTIPLE SCLEROSIS
     Dosage: 0.5 MG, QD
     Route: 048
     Dates: start: 201501, end: 20160128

REACTIONS (20)
  - Decreased vibratory sense [Unknown]
  - Lymphocyte count decreased [Unknown]
  - Multiple sclerosis relapse [Recovered/Resolved]
  - Progressive multifocal leukoencephalopathy [Not Recovered/Not Resolved]
  - Cerebellar ataxia [Unknown]
  - Apathy [Unknown]
  - Reading disorder [Unknown]
  - Hyperreflexia [Unknown]
  - Hydrocephalus [Not Recovered/Not Resolved]
  - White matter lesion [Unknown]
  - Memory impairment [Unknown]
  - Urinary incontinence [Not Recovered/Not Resolved]
  - Cognitive disorder [Recovering/Resolving]
  - Extensor plantar response [Unknown]
  - Paraparesis [Unknown]
  - Fatigue [Unknown]
  - Gait disturbance [Not Recovered/Not Resolved]
  - Cerebrospinal fluid leakage [Unknown]
  - Atrophy [Unknown]
  - Abasia [Unknown]

NARRATIVE: CASE EVENT DATE: 201510
